FAERS Safety Report 8392683-9 (Version None)
Quarter: 2012Q2

REPORT INFORMATION
  Report Type: 
  Country: None (occurrence: None)
  Receive Date: 20120529
  Receipt Date: 20120518
  Transmission Date: 20120825
  Serious: No
  Sender: FDA-Public Use
  Company Number: US-BAYER-2012-050653

PATIENT
  Age: 3 Year
  Sex: Male
  Weight: 16 kg

DRUGS (1)
  1. NAPROXEN SODIUM [Suspect]
     Dosage: 1 DF, ONCE
     Route: 048
     Dates: start: 20120518, end: 20120518

REACTIONS (1)
  - NO ADVERSE EVENT [None]
